FAERS Safety Report 8900954 (Version 1)
Quarter: 2012Q4

REPORT INFORMATION
  Report Type: Report from Study
  Country: RO (occurrence: RO)
  Receive Date: 20121109
  Receipt Date: 20121109
  Transmission Date: 20130627
  Serious: Yes (Life-Threatening, Other)
  Sender: FDA-Public Use
  Company Number: RO-CELGENEUS-135-21880-12110433

PATIENT
  Age: 66 Year
  Sex: Male
  Weight: 79 kg

DRUGS (9)
  1. REVLIMID [Suspect]
     Indication: MULTIPLE MYELOMA
     Dosage: 25 Milligram
     Route: 048
     Dates: start: 20120110, end: 20120130
  2. REVLIMID [Suspect]
     Dosage: 15 Milligram
     Route: 048
     Dates: start: 20120918, end: 20121008
  3. DEXAMETHASONE [Suspect]
     Indication: MULTIPLE MYELOMA
     Route: 065
     Dates: start: 20120110, end: 20120131
  4. DEXAMETHASONE [Suspect]
     Route: 065
     Dates: start: 20120918, end: 20121009
  5. ASPIRINE [Concomitant]
     Indication: ANTICOAGULANT THERAPY
     Dosage: 100 Milligram
     Route: 048
     Dates: start: 20120110
  6. ASPIRINE [Concomitant]
     Indication: ANTIPLATELET THERAPY
  7. AUGMENTIN [Concomitant]
     Indication: URINARY INFECTION
     Dosage: 4 Gram
     Route: 048
     Dates: start: 20120704
  8. LANSOPRAZOLE [Concomitant]
     Indication: DRUG USE FOR UNKNOWN INDICATION
     Dosage: 15 Milligram
     Route: 048
     Dates: start: 20120110
  9. ZOMETA [Concomitant]
     Indication: PROPHYLAXIS
     Dosage: .1429 Gram
     Route: 041
     Dates: start: 20120109

REACTIONS (1)
  - Hepatic cancer [Unknown]
